FAERS Safety Report 4583893-7 (Version None)
Quarter: 2005Q1

REPORT INFORMATION
  Report Type: 
  Country: None (occurrence: None)
  Receive Date: 20050211
  Receipt Date: 20050127
  Transmission Date: 20050727
  Serious: Yes (Hospitalization, Other)
  Sender: FDA-Public Use
  Company Number: 2005020796

PATIENT
  Age: 60 Year
  Sex: Male
  Weight: 87.0906 kg

DRUGS (6)
  1. LIPITOR [Suspect]
     Indication: BLOOD CHOLESTEROL INCREASED
     Dosage: 10 MG (1 IN 1 D)
  2. AMLODIPINE BESYLATE [Concomitant]
  3. ALPRAZOLAM [Concomitant]
  4. LANSOPRAZOLE [Concomitant]
  5. ACETYLSALYSALICYLIC ACID (ACETYLSALICYLIC ACID) [Concomitant]
  6. ENALAPRIL MALETATE (ENALAPRIL MALEATE) [Concomitant]

REACTIONS (4)
  - CARDIO-RESPIRATORY ARREST [None]
  - HAEMOPTYSIS [None]
  - PULMONARY EMBOLISM [None]
  - TRIPLE VESSEL BYPASS GRAFT [None]
